FAERS Safety Report 6298083-X (Version None)
Quarter: 2009Q3

REPORT INFORMATION
  Report Type: 
  Country: None (occurrence: None)
  Receive Date: 20090804
  Receipt Date: 20090804
  Transmission Date: 20100115
  Serious: Yes (Other)
  Sender: FDA-Public Use
  Company Number: None

PATIENT
  Age: 42 Year
  Sex: Female
  Weight: 70.3075 kg

DRUGS (1)
  1. GUAIFENESIN [Suspect]
     Indication: VIRAL INFECTION
     Dosage: 400 MG EVERY 4 HOURS PO
     Route: 048
     Dates: start: 20090728

REACTIONS (5)
  - LOCAL SWELLING [None]
  - SCAB [None]
  - SCAR [None]
  - SWELLING FACE [None]
  - URTICARIA [None]
